FAERS Safety Report 7072510-2 (Version None)
Quarter: 2010Q4

REPORT INFORMATION
  Report Type: 
  Country: None (occurrence: None)
  Receive Date: 20101029
  Receipt Date: 20100204
  Transmission Date: 20110411
  Serious: No
  Sender: FDA-Public Use
  Company Number: A0843011A

PATIENT
  Age: 21 Year
  Sex: Female

DRUGS (1)
  1. ADVAIR DISKUS 100/50 [Suspect]
     Indication: ASTHMA
     Dosage: 100MCG TWICE PER DAY
     Route: 055

REACTIONS (4)
  - FATIGUE [None]
  - INSOMNIA [None]
  - RESPIRATORY RATE INCREASED [None]
  - SLEEP TALKING [None]
